FAERS Safety Report 9325487 (Version 1)
Quarter: 2013Q2

REPORT INFORMATION
  Report Type: Spontaneous
  Country: US (occurrence: None)
  Receive Date: 20130531
  Receipt Date: 20130531
  Transmission Date: 20140414
  Serious: Yes (Hospitalization)
  Sender: FDA-Public Use
  Company Number: None

PATIENT
  Age: 69 Year
  Sex: Male
  Weight: 77.4 kg

DRUGS (1)
  1. BETASERON [Suspect]
     Indication: MULTIPLE SCLEROSIS
     Route: 058

REACTIONS (6)
  - Injection site nodule [None]
  - Injection site erythema [None]
  - Injection site induration [None]
  - Injection site infection [None]
  - Capnocytophaga test positive [None]
  - Injection site abscess [None]
